FAERS Safety Report 11835564 (Version 1)
Quarter: 2015Q4

REPORT INFORMATION
  Report Type: Spontaneous
  Country: US (occurrence: None)
  Receive Date: 20151214
  Receipt Date: 20151214
  Transmission Date: 20160305
  Serious: No
  Sender: FDA-Public Use
  Company Number: None

PATIENT
  Age: 68 Year
  Sex: Female
  Weight: 82.56 kg

DRUGS (3)
  1. MONTELUKAST [Suspect]
     Active Substance: MONTELUKAST SODIUM
     Indication: ASTHMA
     Dosage: 1 PILL
     Route: 048
     Dates: start: 20150930, end: 20151213
  2. ADULT VITAMINS [Concomitant]
  3. BENICAR HCT [Concomitant]
     Active Substance: HYDROCHLOROTHIAZIDE\OLMESARTAN MEDOXOMIL

REACTIONS (6)
  - Eructation [None]
  - Flatulence [None]
  - No therapeutic response [None]
  - Product substitution issue [None]
  - Sleep disorder [None]
  - Dyspepsia [None]

NARRATIVE: CASE EVENT DATE: 20151213
